FAERS Safety Report 24962190 (Version 1)
Quarter: 2025Q1

REPORT INFORMATION
  Report Type: Other
  Country: CA (occurrence: CA)
  Receive Date: 20250212
  Receipt Date: 20250212
  Transmission Date: 20250408
  Serious: Yes (Life-Threatening, Hospitalization, Other)
  Sender: AVEVA DRUG DELIVERY SYSTEMS INC.
  Company Number: None

PATIENT
  Age: 30 Year
  Sex: Female
  Weight: 90 kg

DRUGS (4)
  1. FENTANYL [Suspect]
     Active Substance: FENTANYL
     Indication: Product used for unknown indication
     Route: 065
  2. HYDROMORPHONE [Suspect]
     Active Substance: HYDROMORPHONE
     Indication: Product used for unknown indication
     Route: 065
  3. SUBOXONE [Suspect]
     Active Substance: BUPRENORPHINE HYDROCHLORIDE\NALOXONE HYDROCHLORIDE
     Indication: Drug use disorder
     Route: 065
  4. SUBOXONE [Suspect]
     Active Substance: BUPRENORPHINE HYDROCHLORIDE\NALOXONE HYDROCHLORIDE
     Indication: Drug use disorder
     Route: 065

REACTIONS (5)
  - Cardiac arrest [Recovered/Resolved]
  - Drug abuse [Recovered/Resolved]
  - Drug withdrawal syndrome [Recovered/Resolved]
  - Product use issue [Recovered/Resolved]
  - Unresponsive to stimuli [Recovered/Resolved]
